FAERS Safety Report 8406277-X (Version None)
Quarter: 2012Q2

REPORT INFORMATION
  Report Type: 
  Country: None (occurrence: None)
  Receive Date: 20120604
  Receipt Date: 20120529
  Transmission Date: 20120825
  Serious: Yes (Other)
  Sender: FDA-Public Use
  Company Number: PHHY2012JP046240

PATIENT
  Age: 73 Year
  Sex: Male

DRUGS (1)
  1. PARLODEL [Suspect]
     Route: 048

REACTIONS (2)
  - PLEURISY [None]
  - NEOPLASM MALIGNANT [None]
